FAERS Safety Report 6317675-2 (Version None)
Quarter: 2009Q3

REPORT INFORMATION
  Report Type: 
  Country: None (occurrence: None)
  Receive Date: 20090820
  Receipt Date: 20090820
  Transmission Date: 20100115
  Serious: Yes (Hospitalization)
  Sender: FDA-Public Use
  Company Number: None

PATIENT
  Age: 37 Year
  Sex: Male

DRUGS (1)
  1. TACROLIMUS [Suspect]

REACTIONS (6)
  - ABDOMINAL PAIN [None]
  - BLOOD CREATINE INCREASED [None]
  - DRUG DOSE OMISSION [None]
  - DRUG LEVEL BELOW THERAPEUTIC [None]
  - NAUSEA [None]
  - VOMITING [None]
